FAERS Safety Report 9083312 (Version 1)
Quarter: 2013Q1

REPORT INFORMATION
  Report Type: Report from Study
  Country: US (occurrence: US)
  Receive Date: 20130131
  Receipt Date: 20130131
  Transmission Date: 20140127
  Serious: No
  Sender: FDA-Public Use
  Company Number: US-ABBOTT-12P-163-0986817-00

PATIENT
  Age: 62 Year
  Sex: Female

DRUGS (4)
  1. HUMIRA [Suspect]
     Indication: PSORIASIS
     Dosage: PER PATIENT
     Dates: start: 20120910
  2. OVER THE COUNTER CALCIUM [Concomitant]
     Indication: PRODUCT USED FOR UNKNOWN INDICATION
  3. VITAMIN D [Concomitant]
     Indication: OSTEOPOROSIS
     Dosage: EVERY 2 WEEKS
  4. UNKNOWN TOPICALS [Concomitant]
     Indication: PSORIASIS
     Route: 061

REACTIONS (2)
  - Drug administered at inappropriate site [Not Recovered/Not Resolved]
  - Local swelling [Not Recovered/Not Resolved]
